FAERS Safety Report 23487550 (Version 1)
Quarter: 2024Q1

REPORT INFORMATION
  Report Type: Spontaneous
  Country: US (occurrence: None)
  Receive Date: 20240206
  Receipt Date: 20240206
  Transmission Date: 20240409
  Serious: No
  Sender: FDA-Public Use
  Company Number: None

PATIENT
  Age: 50 Year
  Sex: Male
  Weight: 107.05 kg

DRUGS (1)
  1. COSENTYX [Suspect]
     Active Substance: SECUKINUMAB
     Indication: Ankylosing spondylitis
     Dosage: OTHER QUANTITY : 300MG (2 PENS);?FREQUENCY : AS DIRECTED;?
     Route: 058
     Dates: start: 202310

REACTIONS (3)
  - COVID-19 [None]
  - Intentional dose omission [None]
  - Therapy interrupted [None]
